FAERS Safety Report 10013731 (Version 2)
Quarter: 2014Q3

REPORT INFORMATION
  Report Type: Spontaneous
  Country: US (occurrence: US)
  Receive Date: 20140316
  Receipt Date: 20140724
  Transmission Date: 20150326
  Serious: Yes (Life-Threatening, Hospitalization, Disabling, Other)
  Sender: FDA-Public Use
  Company Number: US-BAYER-2014-036400

PATIENT
  Age: 24 Year
  Sex: Female
  Weight: 62.13 kg

DRUGS (4)
  1. MOTRIN [Concomitant]
     Active Substance: IBUPROFEN
  2. PRENATAL VITAMINS [Concomitant]
     Active Substance: VITAMINS
  3. FLAXSEED [Concomitant]
     Active Substance: FLAX SEED
  4. MIRENA [Suspect]
     Active Substance: LEVONORGESTREL
     Indication: CONTRACEPTION
     Dosage: 20 MCG/24HR, CONT
     Route: 015
     Dates: start: 20110623, end: 20120319

REACTIONS (10)
  - Abdominal pain [None]
  - Genital haemorrhage [None]
  - Uterine perforation [None]
  - Vaginal haemorrhage [None]
  - Anxiety [None]
  - Device dislocation [None]
  - Anhedonia [None]
  - Injury [None]
  - Pelvic pain [None]
  - General physical health deterioration [None]

NARRATIVE: CASE EVENT DATE: 201106
